FAERS Safety Report 7736763-7 (Version None)
Quarter: 2011Q3

REPORT INFORMATION
  Report Type: 
  Country: None (occurrence: None)
  Receive Date: 20110908
  Receipt Date: 20110901
  Transmission Date: 20111222
  Serious: Yes (Hospitalization, Other)
  Sender: FDA-Public Use
  Company Number: PHEH2011US01500

PATIENT
  Sex: Female

DRUGS (2)
  1. EXTAVIA [Suspect]
     Dosage: 0.25 MG, QOD
     Route: 058
     Dates: start: 20110809
  2. EXTAVIA [Suspect]
     Indication: MULTIPLE SCLEROSIS
     Dosage: 0.25 MG, QOD
     Route: 058

REACTIONS (11)
  - INFLUENZA LIKE ILLNESS [None]
  - MULTIPLE SCLEROSIS RELAPSE [None]
  - APHAGIA [None]
  - GAIT DISTURBANCE [None]
  - FEELING ABNORMAL [None]
  - PAIN IN EXTREMITY [None]
  - INSOMNIA [None]
  - FALL [None]
  - BALANCE DISORDER [None]
  - INFECTION [None]
  - PAIN [None]
